FAERS Safety Report 5676497-6 (Version None)
Quarter: 2008Q2

REPORT INFORMATION
  Report Type: 
  Country: None (occurrence: None)
  Receive Date: 20080311
  Receipt Date: 20071115
  Transmission Date: 20081010
  Serious: No
  Sender: FDA-Public Use
  Company Number: 002#02#2007-00332

PATIENT
  Age: 54 Year
  Sex: Female
  Weight: 88.4514 kg

DRUGS (4)
  1. NEUPRO [Suspect]
     Indication: PARKINSON'S DISEASE
     Dosage: 2MG/24H,1 IN 1 D,TRANSDERMAL; 4MG/24H,1 IN 1 D,TRANSDERMAL;6MG/24H,1 IN 1 D,TRANSDERMAL
     Route: 062
     Dates: start: 20070929, end: 20071005
  2. NEUPRO [Suspect]
     Indication: PARKINSON'S DISEASE
     Dosage: 2MG/24H,1 IN 1 D,TRANSDERMAL; 4MG/24H,1 IN 1 D,TRANSDERMAL;6MG/24H,1 IN 1 D,TRANSDERMAL
     Route: 062
     Dates: start: 20071006, end: 20071012
  3. NEUPRO [Suspect]
     Indication: PARKINSON'S DISEASE
     Dosage: 2MG/24H,1 IN 1 D,TRANSDERMAL; 4MG/24H,1 IN 1 D,TRANSDERMAL;6MG/24H,1 IN 1 D,TRANSDERMAL
     Route: 062
     Dates: start: 20071013
  4. DIOVAN HCT [Concomitant]

REACTIONS (2)
  - APPLICATION SITE REACTION [None]
  - PHARMACEUTICAL PRODUCT COMPLAINT [None]
